FAERS Safety Report 19360352 (Version 1)
Quarter: 2021Q2

REPORT INFORMATION
  Report Type: Spontaneous
  Country: US (occurrence: US)
  Receive Date: 20210601
  Receipt Date: 20210601
  Transmission Date: 20210717
  Serious: Yes (Other)
  Sender: FDA-Public Use
  Company Number: US-TARO-2021TAR00532

PATIENT
  Age: 36 Year
  Sex: Female

DRUGS (6)
  1. ZONISAMIDE. [Suspect]
     Active Substance: ZONISAMIDE
     Indication: EPILEPSY
     Dosage: 200 MG, DAILY
     Route: 065
  2. METHYLCOBALAMIN B12 [Suspect]
     Active Substance: METHYLCOBALAMIN
     Indication: EPILEPSY
     Dosage: 5 MG, DAILY
     Route: 065
  3. PRENATAL VITAMINS [Suspect]
     Active Substance: VITAMINS
     Indication: EPILEPSY
     Dosage: UNK
     Route: 065
  4. LEVETIRACETAM. [Suspect]
     Active Substance: LEVETIRACETAM
     Indication: EPILEPSY
     Dosage: 1500 MG, BID
     Route: 065
  5. CHOLECALCIFEROL [Suspect]
     Active Substance: CHOLECALCIFEROL
     Indication: EPILEPSY
     Dosage: 2000 IU, DAILY
     Route: 065
  6. L?METHYLFOLATE [Suspect]
     Active Substance: LEVOMEFOLIC ACID
     Indication: EPILEPSY
     Dosage: 5 MG, DAILY
     Route: 065

REACTIONS (2)
  - Exposure during pregnancy [Unknown]
  - Perinatal depression [Unknown]
